FAERS Safety Report 20338469 (Version 1)
Quarter: 2022Q1

REPORT INFORMATION
  Report Type: Spontaneous
  Country: None (occurrence: A1)
  Receive Date: 20220115
  Receipt Date: 20220115
  Transmission Date: 20220424
  Serious: Yes (Life-Threatening, Hospitalization, Other)
  Sender: FDA-Public Use
  Company Number: A1-Acella Pharmaceuticals, LLC-2123965

PATIENT
  Age: 21 Year
  Sex: Female

DRUGS (3)
  1. GABAPENTIN [Suspect]
     Active Substance: GABAPENTIN
     Indication: Product used for unknown indication
     Route: 065
  2. BUPROPION [Concomitant]
     Active Substance: BUPROPION
     Route: 065
  3. PROPRANOLOL [Concomitant]
     Active Substance: PROPRANOLOL HYDROCHLORIDE
     Route: 065

REACTIONS (13)
  - Generalised tonic-clonic seizure [Unknown]
  - Tachycardia [Unknown]
  - Hyperhidrosis [Unknown]
  - Dry mouth [Unknown]
  - Mydriasis [Unknown]
  - Conjunctival hyperaemia [Unknown]
  - Metabolic acidosis [Unknown]
  - Ventricular tachycardia [Unknown]
  - Abnormal behaviour [Unknown]
  - Seizure [Unknown]
  - Status epilepticus [Unknown]
  - Haemodynamic instability [Unknown]
  - Blood lactic acid increased [Unknown]
